FAERS Safety Report 8924993 (Version 3)
Quarter: 2012Q4

REPORT INFORMATION
  Report Type: 
  Country: JP (occurrence: JP)
  Receive Date: 20121126
  Receipt Date: 20121206
  Transmission Date: 20130627
  Serious: Yes (Hospitalization)
  Sender: FDA-Public Use
  Company Number: JP-ROCHE-1159428

PATIENT

DRUGS (2)
  1. MIRCERA [Suspect]
     Indication: NEPHROGENIC ANAEMIA
     Route: 058
     Dates: start: 20121016, end: 20121115
  2. ZYLORIC [Concomitant]
     Dosage: Dosage is uncertain.
     Route: 048

REACTIONS (1)
  - Hepatic function abnormal [Unknown]
